FAERS Safety Report 15271957 (Version 1)
Quarter: 2018Q3

REPORT INFORMATION
  Report Type: Spontaneous
  Country: JP (occurrence: JP)
  Receive Date: 20180813
  Receipt Date: 20180813
  Transmission Date: 20181010
  Serious: Yes (Death, Life-Threatening)
  Sender: FDA-Public Use
  Company Number: JP-ALLERGAN-1837995US

PATIENT
  Age: 86 Year
  Sex: Male

DRUGS (1)
  1. ASENAPINE MALEATE ? BP [Suspect]
     Active Substance: ASENAPINE MALEATE
     Indication: PRODUCT USED FOR UNKNOWN INDICATION
     Dosage: 10 MG, BID AS NEEDED
     Route: 060

REACTIONS (3)
  - Inappropriate schedule of drug administration [Unknown]
  - White blood cell count decreased [Unknown]
  - Death [Fatal]

NARRATIVE: CASE EVENT DATE: 20180701
